FAERS Safety Report 6531962-4 (Version None)
Quarter: 2010Q1

REPORT INFORMATION
  Report Type: 
  Country: None (occurrence: None)
  Receive Date: 20100107
  Receipt Date: 20100107
  Transmission Date: 20100710
  Serious: Yes (Other)
  Sender: FDA-Public Use
  Company Number: None

PATIENT
  Age: 60 Year
  Sex: Female
  Weight: 50.8029 kg

DRUGS (3)
  1. CLARITHROMYCIN [Suspect]
     Indication: LUNG INFECTION
     Dosage: 2 X DAILY 7 DAYS EVERY 3RD OTHER
     Route: 050
     Dates: start: 20091001, end: 20091007
  2. SIMVASTATIN [Suspect]
     Indication: BLOOD CHOLESTEROL
     Dosage: 1 PER DAY DAILY OTHER
     Route: 050
     Dates: start: 20081123, end: 20091231
  3. SIMVASTATIN [Suspect]
     Indication: CARDIAC DISORDER
     Dosage: 1 PER DAY DAILY OTHER
     Route: 050
     Dates: start: 20081123, end: 20091231

REACTIONS (6)
  - ABDOMINAL PAIN UPPER [None]
  - BLOOD GLUCOSE INCREASED [None]
  - DRUG INTERACTION [None]
  - FLATULENCE [None]
  - GASTROINTESTINAL PAIN [None]
  - LETHARGY [None]
